FAERS Safety Report 9156964 (Version 1)
Quarter: 2013Q1

REPORT INFORMATION
  Report Type: Spontaneous
  Country: US (occurrence: US)
  Receive Date: 20130312
  Receipt Date: 20130312
  Transmission Date: 20140127
  Serious: Yes (Hospitalization)
  Sender: FDA-Public Use
  Company Number: US-BAYER-2013-028039

PATIENT
  Age: 25 Year
  Sex: Female
  Weight: 56.69 kg

DRUGS (5)
  1. YASMIN [Suspect]
     Dosage: UNK
  2. BEYAZ [Suspect]
     Dosage: UNK
     Dates: start: 20111011, end: 20111209
  3. GIANVI [Suspect]
     Dosage: UNK
  4. YAZ [Suspect]
     Indication: CONTRACEPTION
     Dosage: UNK
  5. AMPHETAMINE SALTS [Concomitant]
     Dosage: 20 MG, UNK

REACTIONS (1)
  - Deep vein thrombosis [None]
